FAERS Safety Report 10573614 (Version 1)
Quarter: 2014Q4

REPORT INFORMATION
  Report Type: Spontaneous
  Country: CN (occurrence: None)
  Receive Date: 20141030
  Receipt Date: 20141030
  Transmission Date: 20150529
  Serious: Yes (Other)
  Sender: FDA-Public Use
  Company Number: PHHY2014CN037493

PATIENT

DRUGS (2)
  1. SEBIVO [Suspect]
     Active Substance: TELBIVUDINE
     Indication: HEPATITIS
  2. SEBIVO [Suspect]
     Active Substance: TELBIVUDINE
     Indication: MULTIPLE SCLEROSIS

REACTIONS (2)
  - Neuropathy peripheral [None]
  - Hypoaesthesia [None]
